FAERS Safety Report 25505503 (Version 1)
Quarter: 2025Q3

REPORT INFORMATION
  Report Type: Spontaneous
  Country: EU (occurrence: EU)
  Receive Date: 20250702
  Receipt Date: 20250702
  Transmission Date: 20251020
  Serious: Yes (Hospitalization)
  Sender: SANDOZ
  Company Number: None

PATIENT
  Sex: Female

DRUGS (1)
  1. CIPROFLOXACIN [Suspect]
     Active Substance: CIPROFLOXACIN
     Indication: Product used for unknown indication
     Route: 065

REACTIONS (16)
  - Tachycardia [Recovered/Resolved]
  - Sleep disorder [Unknown]
  - Asthenia [Unknown]
  - Nervousness [Unknown]
  - Irritability [Unknown]
  - Confusional state [Unknown]
  - Heart rate increased [Recovered/Resolved]
  - Dizziness [Unknown]
  - Agitation [Unknown]
  - Dizziness [Unknown]
  - Gait disturbance [Unknown]
  - Dizziness postural [Unknown]
  - Aphasia [Unknown]
  - Anxiety [Unknown]
  - Heart rate irregular [Recovered/Resolved]
  - Malaise [Unknown]
